FAERS Safety Report 13705734 (Version 1)
Quarter: 2017Q2

REPORT INFORMATION
  Report Type: Report from Study
  Country: US (occurrence: US)
  Receive Date: 20170630
  Receipt Date: 20170630
  Transmission Date: 20170830
  Serious: Yes (Hospitalization)
  Sender: FDA-Public Use
  Company Number: US-JNJFOC-20170627656

PATIENT
  Age: 83 Year
  Sex: Female

DRUGS (23)
  1. BETAPACE [Concomitant]
     Active Substance: SOTALOL HYDROCHLORIDE
  2. COLACE [Concomitant]
     Active Substance: DOCUSATE SODIUM
  3. ISOSORBIDE MONONITRATE. [Concomitant]
     Active Substance: ISOSORBIDE MONONITRATE
  4. OPANA [Concomitant]
     Active Substance: OXYMORPHONE HYDROCHLORIDE
  5. CRESTOR [Concomitant]
     Active Substance: ROSUVASTATIN CALCIUM
  6. BREO ELLIPTA [Concomitant]
     Active Substance: FLUTICASONE FUROATE\VILANTEROL TRIFENATATE
  7. NORCO [Concomitant]
     Active Substance: ACETAMINOPHEN\HYDROCODONE BITARTRATE
  8. DOCOSAHEXANOIC ACID W/EICOSAPENTAENOIC ACID [Concomitant]
  9. CENTRUM SILVER [Concomitant]
     Active Substance: MINERALS\VITAMINS
  10. TACROLIMUS. [Concomitant]
     Active Substance: TACROLIMUS
  11. IMBRUVICA [Suspect]
     Active Substance: IBRUTINIB
     Indication: CHRONIC LYMPHOCYTIC LEUKAEMIA
     Route: 048
     Dates: start: 20170616
  12. MEGESTROL [Concomitant]
     Active Substance: MEGESTROL
  13. ASPIRIN. [Concomitant]
     Active Substance: ASPIRIN
  14. OMEPRAZOLE. [Concomitant]
     Active Substance: OMEPRAZOLE
  15. LUMIGAN [Concomitant]
     Active Substance: BIMATOPROST
  16. ALLOPURINOL. [Concomitant]
     Active Substance: ALLOPURINOL
  17. FUROSEMIDE. [Concomitant]
     Active Substance: FUROSEMIDE
  18. UMECLIDINIUM [Concomitant]
     Active Substance: UMECLIDINIUM BROMIDE
  19. METOLAZONE. [Concomitant]
     Active Substance: METOLAZONE
  20. BIOTIN [Concomitant]
     Active Substance: BIOTIN
  21. CALCIUM [Concomitant]
     Active Substance: CALCIUM
  22. GABAPENTIN. [Concomitant]
     Active Substance: GABAPENTIN
  23. ULTRAM [Concomitant]
     Active Substance: TRAMADOL HYDROCHLORIDE

REACTIONS (3)
  - Cardiac failure congestive [Not Recovered/Not Resolved]
  - Haemoglobin decreased [Unknown]
  - Asthenia [Unknown]

NARRATIVE: CASE EVENT DATE: 20170620
